FAERS Safety Report 24980508 (Version 26)
Quarter: 2025Q4

REPORT INFORMATION
  Report Type: Spontaneous
  Country: CA (occurrence: CA)
  Receive Date: 20250218
  Receipt Date: 20251127
  Transmission Date: 20260118
  Serious: Yes (Other)
  Sender: ASTELLAS
  Company Number: CA-PFIZER INC-PV202400122812

PATIENT
  Age: 43 Year
  Sex: Female
  Weight: 89 kg

DRUGS (36)
  1. PADCEV [Suspect]
     Active Substance: ENFORTUMAB VEDOTIN-EJFV
     Indication: Metastatic carcinoma of the bladder
     Dosage: 1.25 MG/KG, CYCLIC (DAY 1 AND 8 OF 21-DAY)?POWDER FOR SOLUTION FOR INFUSION
     Route: 042
     Dates: start: 20240702
  2. PADCEV [Suspect]
     Active Substance: ENFORTUMAB VEDOTIN-EJFV
     Dosage: 1.25 MG/KG, CYCLIC (DAY 1 AND 8 OF 21-DAY)?POWDER FOR SOLUTION FOR INFUSION
     Route: 042
     Dates: start: 20241024
  3. PADCEV [Suspect]
     Active Substance: ENFORTUMAB VEDOTIN-EJFV
     Dosage: 111 MG, CYCLIC (DAY 1 + 8 Q21 DAYS)?POWDER FOR SOLUTION FOR INFUSION
     Route: 042
     Dates: start: 20241031
  4. PADCEV [Suspect]
     Active Substance: ENFORTUMAB VEDOTIN-EJFV
     Dosage: 111 MG, CYCLIC (DAY 1 + 8 EVERY (Q)21 DAYS)?POWDER FOR SOLUTION FOR INFUSION
     Route: 042
     Dates: start: 20241114
  5. PADCEV [Suspect]
     Active Substance: ENFORTUMAB VEDOTIN-EJFV
     Dosage: 111 MG, CYCLIC (DAY 1 + 8 EVERY (Q)21 DAYS)?POWDER FOR SOLUTION FOR INFUSION
     Route: 042
     Dates: start: 20241206
  6. PADCEV [Suspect]
     Active Substance: ENFORTUMAB VEDOTIN-EJFV
     Dosage: 111 MG, CYCLIC (DAY 1 + 8 EVERY (Q) 21 DAYS INFUSION #18)?POWDER FOR SOLUTION FOR INFUSION
     Route: 042
     Dates: start: 20241212
  7. PADCEV [Suspect]
     Active Substance: ENFORTUMAB VEDOTIN-EJFV
     Dosage: 111 MG, CYCLIC (DAY 1 + 8 EVERY (Q) 21 DAYS)?POWDER FOR SOLUTION FOR INFUSION
     Route: 042
     Dates: start: 20241226
  8. PADCEV [Suspect]
     Active Substance: ENFORTUMAB VEDOTIN-EJFV
     Dosage: 111 MG, CYCLIC (DAY 1 + 8 EVERY (Q) 21 DAYS)?POWDER FOR SOLUTION FOR INFUSION
     Route: 042
     Dates: start: 20250106
  9. PADCEV [Suspect]
     Active Substance: ENFORTUMAB VEDOTIN-EJFV
     Dosage: 111 MG, CYCLIC (DAY 1 + 8 CYCLE C11D1)?POWDER FOR SOLUTION FOR INFUSION
     Route: 042
     Dates: start: 20250120
  10. PADCEV [Suspect]
     Active Substance: ENFORTUMAB VEDOTIN-EJFV
     Dosage: 111 MG, CYCLIC (C11 D1, FREQUENCY: D1 AND D8)?POWDER FOR SOLUTION FOR INFUSION
     Route: 042
     Dates: start: 20250127
  11. PADCEV [Suspect]
     Active Substance: ENFORTUMAB VEDOTIN-EJFV
     Dosage: 111 MG, CYCLIC (C11 D8, FREQUENCY: D1 AND D8)?POWDER FOR SOLUTION FOR INFUSION
     Route: 042
     Dates: start: 20250210
  12. PADCEV [Suspect]
     Active Substance: ENFORTUMAB VEDOTIN-EJFV
     Dosage: 111 MG, CYCLIC (D1 AND D8, CYCLE: C12)?POWDER FOR SOLUTION FOR INFUSION
     Route: 042
     Dates: start: 20250217
  13. PADCEV [Suspect]
     Active Substance: ENFORTUMAB VEDOTIN-EJFV
     Dosage: 111 MG, CYCLIC (D1 + D8)?POWDER FOR SOLUTION FOR INFUSION
     Route: 042
     Dates: start: 20250303
  14. PADCEV [Suspect]
     Active Substance: ENFORTUMAB VEDOTIN-EJFV
     Dosage: 111 MG, CYCLIC (FREQUENCY D1 + D8, CYCLE #13, DAY #8)?POWDER FOR SOLUTION FOR INFUSION
     Route: 042
     Dates: start: 20250310
  15. PADCEV [Suspect]
     Active Substance: ENFORTUMAB VEDOTIN-EJFV
     Dosage: 94 MG?POWDER FOR SOLUTION FOR INFUSION
     Route: 042
     Dates: start: 20250324
  16. PADCEV [Suspect]
     Active Substance: ENFORTUMAB VEDOTIN-EJFV
     Dosage: 94 MG?POWDER FOR SOLUTION FOR INFUSION
     Route: 042
     Dates: start: 20250331
  17. PADCEV [Suspect]
     Active Substance: ENFORTUMAB VEDOTIN-EJFV
     Dosage: 94 MG, CYCLIC (D1 + D8)?POWDER FOR SOLUTION FOR INFUSION
     Route: 042
     Dates: start: 20250414
  18. PADCEV [Suspect]
     Active Substance: ENFORTUMAB VEDOTIN-EJFV
     Dosage: 94 MG, CYCLIC (D1 + D8)?POWDER FOR SOLUTION FOR INFUSION
     Route: 042
     Dates: start: 20250421
  19. PADCEV [Suspect]
     Active Substance: ENFORTUMAB VEDOTIN-EJFV
     Dosage: 94 MG, CYCLIC (D1 + D8)?POWDER FOR SOLUTION FOR INFUSION
     Route: 042
     Dates: start: 20250505
  20. PADCEV [Suspect]
     Active Substance: ENFORTUMAB VEDOTIN-EJFV
     Dosage: 94 MG, CYCLIC (D1 + D8)?POWDER FOR SOLUTION FOR INFUSION
     Route: 042
     Dates: start: 20250512
  21. PADCEV [Suspect]
     Active Substance: ENFORTUMAB VEDOTIN-EJFV
     Dosage: 94 MG, CYCLIC (D1 + D8)?POWDER FOR SOLUTION FOR INFUSION
     Route: 042
     Dates: start: 20250526
  22. PADCEV [Suspect]
     Active Substance: ENFORTUMAB VEDOTIN-EJFV
     Dosage: 94 MG, CYCLIC (D1 + D8)?POWDER FOR SOLUTION FOR INFUSION
     Route: 042
     Dates: start: 20250602
  23. PADCEV [Suspect]
     Active Substance: ENFORTUMAB VEDOTIN-EJFV
     Dosage: 94 MG, CYCLIC (D1 + D8)?POWDER FOR SOLUTION FOR INFUSION
     Route: 042
     Dates: start: 20250717
  24. PADCEV [Suspect]
     Active Substance: ENFORTUMAB VEDOTIN-EJFV
     Dosage: 94 MG, CYCLIC (D1 + D8)?POWDER FOR SOLUTION FOR INFUSION
     Route: 042
     Dates: start: 20250724
  25. PADCEV [Suspect]
     Active Substance: ENFORTUMAB VEDOTIN-EJFV
     Dosage: 94 MG, CYCLIC (D1 + D8)?POWDER FOR SOLUTION FOR INFUSION
     Route: 042
     Dates: start: 20250904
  26. PADCEV [Suspect]
     Active Substance: ENFORTUMAB VEDOTIN-EJFV
     Dosage: 94 MG, CYCLIC (D1 + D8)?POWDER FOR SOLUTION FOR INFUSION
     Route: 042
     Dates: start: 20250911
  27. PADCEV [Suspect]
     Active Substance: ENFORTUMAB VEDOTIN-EJFV
     Dosage: 87 MG, CYCLIC (D1 + D8)?POWDER FOR SOLUTION FOR INFUSION
     Route: 042
     Dates: start: 20250911
  28. PADCEV [Suspect]
     Active Substance: ENFORTUMAB VEDOTIN-EJFV
     Dosage: 87 MG, CYCLIC (D1 + D8)?POWDER FOR SOLUTION FOR INFUSION
     Route: 042
     Dates: start: 20250925
  29. PADCEV [Suspect]
     Active Substance: ENFORTUMAB VEDOTIN-EJFV
     Dosage: 87 MG, CYCLIC (D1 + D8)?POWDER FOR SOLUTION FOR INFUSION
     Route: 042
     Dates: start: 20251002
  30. PADCEV [Suspect]
     Active Substance: ENFORTUMAB VEDOTIN-EJFV
     Dosage: 87 MG, D1 + D8?POWDER FOR SOLUTION FOR INFUSION
     Route: 042
     Dates: start: 20251016
  31. PADCEV [Suspect]
     Active Substance: ENFORTUMAB VEDOTIN-EJFV
     Dosage: 87 MG, D1 + D8?POWDER FOR SOLUTION FOR INFUSION
     Route: 042
     Dates: start: 20251113
  32. PADCEV [Suspect]
     Active Substance: ENFORTUMAB VEDOTIN-EJFV
     Dosage: 87 MG, D1 + D8?POWDER FOR SOLUTION FOR INFUSION
     Route: 042
     Dates: start: 20251120
  33. KEYTRUDA [Suspect]
     Active Substance: PEMBROLIZUMAB
     Indication: Product used for unknown indication
     Dosage: UNK
     Route: 065
     Dates: start: 20240702
  34. KEYTRUDA [Suspect]
     Active Substance: PEMBROLIZUMAB
     Dosage: 200 MG
     Route: 042
     Dates: start: 20241206, end: 20241206
  35. KEYTRUDA [Suspect]
     Active Substance: PEMBROLIZUMAB
     Dosage: 200 MG
     Route: 042
     Dates: start: 20250303, end: 20250303
  36. KEYTRUDA [Suspect]
     Active Substance: PEMBROLIZUMAB
     Dosage: UNK
     Route: 042
     Dates: end: 2025

REACTIONS (24)
  - Pneumonia [Recovering/Resolving]
  - Ureteric obstruction [Unknown]
  - Neuropathy peripheral [Recovering/Resolving]
  - Muscle rupture [Recovering/Resolving]
  - Hypoaesthesia [Recovering/Resolving]
  - Fatigue [Not Recovered/Not Resolved]
  - Alopecia [Not Recovered/Not Resolved]
  - Rash [Recovered/Resolved]
  - Paraesthesia [Not Recovered/Not Resolved]
  - Dry skin [Not Recovered/Not Resolved]
  - Rhinorrhoea [Unknown]
  - Pruritus [Recovered/Resolved]
  - Insomnia [Not Recovered/Not Resolved]
  - Weight increased [Recovered/Resolved]
  - Dermatitis acneiform [Not Recovered/Not Resolved]
  - Sensory loss [Not Recovered/Not Resolved]
  - Dry mouth [Not Recovered/Not Resolved]
  - Tanning [Unknown]
  - Constipation [Unknown]
  - Fall [Recovered/Resolved]
  - Pain in extremity [Recovering/Resolving]
  - Inappropriate schedule of product administration [Unknown]
  - Hormone level abnormal [Unknown]
  - Mass [Recovered/Resolved]

NARRATIVE: CASE EVENT DATE: 20240101
